FAERS Safety Report 9173953 (Version 1)
Quarter: 2013Q1

REPORT INFORMATION
  Report Type: Spontaneous
  Country: GR (occurrence: None)
  Receive Date: 20130315
  Receipt Date: 20130315
  Transmission Date: 20140127
  Serious: Yes (Hospitalization)
  Sender: FDA-Public Use
  Company Number: KAD201303-000331

PATIENT
  Age: 47 Year
  Sex: Male

DRUGS (10)
  1. AMPHOTERICIN B [Suspect]
     Indication: MENINGITIS CRYPTOCOCCAL
     Dosage: STOPPED
     Route: 042
  2. LIPOSOMAL AMPHOTERICIN B [Suspect]
     Indication: MENINGITIS CRYPTOCOCCAL
     Dosage: STOPPED
  3. 5-FLUCYTOSINE [Suspect]
     Indication: MENINGITIS CRYPTOCOCCAL
     Dosage: STOPPED
     Route: 048
  4. FLUCONAZOLE (FLUCONAZOLE) [Suspect]
     Indication: MENINGITIS CRYPTOCOCCAL
     Route: 048
  5. LAMIVUDINE [Suspect]
     Indication: HIV INFECTION
  6. EMTRICITABINE/TENOFOVIR DISOPROXIL FUMARATE [Suspect]
     Indication: HIV INFECTION
  7. DARUNAVIR/RITONAVIR [Suspect]
     Indication: HIV INFECTION
  8. ENFUVIRTIDE [Suspect]
     Indication: HIV INFECTION
  9. EFAVIRENZ [Suspect]
     Indication: HIV INFECTION
     Dosage: STOPPED
  10. ZIDOVUDINE (ZIDOVUDINE) [Suspect]
     Indication: HIV INFECTION
     Dosage: STOPPED

REACTIONS (5)
  - Renal impairment [None]
  - Nephropathy toxic [None]
  - Hepatotoxicity [None]
  - Immune reconstitution inflammatory syndrome [None]
  - Drug ineffective [None]
